FAERS Safety Report 5900577-0 (Version None)
Quarter: 2008Q3

REPORT INFORMATION
  Report Type: 
  Country: None (occurrence: None)
  Receive Date: 20080926
  Receipt Date: 20080919
  Transmission Date: 20090109
  Serious: No
  Sender: FDA-Public Use
  Company Number: GB-PFIZER INC-2008071617

PATIENT
  Age: 69 Year
  Sex: Male

DRUGS (7)
  1. LIPITOR [Suspect]
     Indication: LIPIDS INCREASED
     Route: 048
     Dates: start: 20080506
  2. DILTIAZEM HCL [Concomitant]
  3. ACETYLSALICYLIC ACID SRT [Concomitant]
     Dosage: TEXT:75 MG
  4. OMEPRAZOLE [Concomitant]
  5. GLYCERYL TRINITRATE [Concomitant]
     Dosage: TEXT:200 DOSE-FREQ:AS NECESSARY
  6. BISOPROLOL FUMARATE [Concomitant]
     Dosage: DAILY DOSE:2.5MG-FREQ:DAILY
  7. CLOPIDOGREL [Concomitant]
     Dosage: DAILY DOSE:75MG-FREQ:DAILY

REACTIONS (1)
  - MOUTH HAEMORRHAGE [None]
